FAERS Safety Report 8839634 (Version 1)
Quarter: 2012Q4

REPORT INFORMATION
  Report Type: Spontaneous
  Country: US (occurrence: None)
  Receive Date: 20121012
  Receipt Date: 20121012
  Transmission Date: 20130627
  Serious: Yes (Hospitalization, Disabling)
  Sender: FDA-Public Use
  Company Number: None

PATIENT
  Age: 55 Year
  Sex: Female
  Weight: 72.58 kg

DRUGS (1)
  1. CIPROFLOXACIN [Suspect]
     Dosage: 6 doses
exp date 9/30/2013
     Dates: start: 20120930, end: 20121002

REACTIONS (9)
  - Toxicity to various agents [None]
  - Headache [None]
  - Musculoskeletal stiffness [None]
  - Vision blurred [None]
  - Confusional state [None]
  - Muscular weakness [None]
  - Palpitations [None]
  - Blood pressure increased [None]
  - Poisoning [None]
